FAERS Safety Report 21547582 (Version 2)
Quarter: 2022Q4

REPORT INFORMATION
  Report Type: Report from Study
  Country: US (occurrence: US)
  Receive Date: 20221103
  Receipt Date: 20221125
  Transmission Date: 20230113
  Serious: Yes (Hospitalization, Other)
  Sender: FDA-Public Use
  Company Number: US-UCBSA-2022062688

PATIENT
  Sex: Female

DRUGS (2)
  1. MIDAZOLAM [Suspect]
     Active Substance: MIDAZOLAM
     Indication: Epilepsy
     Dosage: 5 MILLIGRAM, AS NEEDED (PRN)
     Route: 045
  2. MIDAZOLAM [Suspect]
     Active Substance: MIDAZOLAM
     Indication: Seizure

REACTIONS (9)
  - Seizure [Unknown]
  - Endotracheal intubation [Unknown]
  - Loss of consciousness [Unknown]
  - Road traffic accident [Not Recovered/Not Resolved]
  - Limb operation [Not Recovered/Not Resolved]
  - Head injury [Not Recovered/Not Resolved]
  - Victim of sexual abuse [Unknown]
  - Product availability issue [Unknown]
  - Therapy interrupted [Unknown]

NARRATIVE: CASE EVENT DATE: 20220101
